FAERS Safety Report 19827174 (Version 1)
Quarter: 2021Q3

REPORT INFORMATION
  Report Type: Report from Study
  Country: None (occurrence: US)
  Receive Date: 20210914
  Receipt Date: 20210914
  Transmission Date: 20211014
  Serious: Yes (Other)
  Sender: FDA-Public Use
  Company Number: US-ABBVIE-21K-163-4071602-00

PATIENT
  Sex: Female

DRUGS (1)
  1. HUMIRA [Suspect]
     Active Substance: ADALIMUMAB
     Indication: CROHN^S DISEASE
     Dosage: CF
     Route: 058

REACTIONS (5)
  - Surgery [Recovered/Resolved]
  - Crohn^s disease [Recovered/Resolved]
  - Arterial occlusive disease [Not Recovered/Not Resolved]
  - Rectal obstruction [Not Recovered/Not Resolved]
  - Nausea [Recovered/Resolved]
